FAERS Safety Report 6747110-1 (Version None)
Quarter: 2010Q2

REPORT INFORMATION
  Report Type: 
  Country: None (occurrence: None)
  Receive Date: 20100528
  Receipt Date: 20100519
  Transmission Date: 20101027
  Serious: Yes (Other)
  Sender: FDA-Public Use
  Company Number: US-PFIZER INC-2007086541

PATIENT
  Sex: Male
  Weight: 79.365 kg

DRUGS (5)
  1. DILANTIN [Suspect]
     Indication: CONVULSION
     Dosage: 100 MG, 4X/DAY
     Route: 048
  2. MEBARAL [Concomitant]
     Indication: CONVULSION
     Dosage: 200 MG, 1X/DAY
     Route: 048
  3. LIPITOR [Concomitant]
     Indication: BLOOD CHOLESTEROL INCREASED
     Dosage: 20 MG, 1X/DAY
     Route: 048
  4. RAMIPRIL [Concomitant]
     Indication: HYPERTENSION
     Dosage: 10 MG, 1X/DAY
  5. TRILEPTAL [Concomitant]
     Indication: CONVULSION
     Dosage: 300 MG, 2X/DAY
     Route: 048

REACTIONS (2)
  - CONVULSION [None]
  - OSTEOPENIA [None]
